FAERS Safety Report 5629669-0 (Version None)
Quarter: 2008Q1

REPORT INFORMATION
  Report Type: 
  Country: None (occurrence: None)
  Receive Date: 20080218
  Receipt Date: 20080211
  Transmission Date: 20080703
  Serious: Yes (Other)
  Sender: FDA-Public Use
  Company Number: B0507208A

PATIENT
  Age: 41 Year
  Sex: Male

DRUGS (2)
  1. LAMICTAL [Suspect]
     Route: 065
  2. NAPROXEN [Concomitant]

REACTIONS (5)
  - ARTHRITIS [None]
  - CUTANEOUS VASCULITIS [None]
  - HYPERSENSITIVITY [None]
  - JOINT SWELLING [None]
  - OEDEMA PERIPHERAL [None]
